FAERS Safety Report 6362549-4 (Version None)
Quarter: 2009Q3

REPORT INFORMATION
  Report Type: 
  Country: None (occurrence: None)
  Receive Date: 20090918
  Receipt Date: 20090604
  Transmission Date: 20100115
  Serious: No
  Sender: FDA-Public Use
  Company Number: US-ABBOTT-09P-163-0578008-00

PATIENT
  Sex: Female
  Weight: 90.8 kg

DRUGS (6)
  1. HUMIRA [Suspect]
     Indication: RHEUMATOID ARTHRITIS
     Route: 058
     Dates: start: 20060901
  2. METHOTREXATE [Concomitant]
     Indication: RHEUMATOID ARTHRITIS
     Route: 048
  3. PLAQUENIL [Concomitant]
     Indication: RHEUMATOID ARTHRITIS
     Route: 048
  4. FOLIC ACID [Concomitant]
     Indication: MEDICAL DIET
     Route: 048
  5. PERCOCET [Concomitant]
     Indication: PAIN
     Route: 048
  6. PRILOSEC [Concomitant]
     Indication: GASTRIC ULCER
     Route: 048

REACTIONS (7)
  - BLOODY DISCHARGE [None]
  - COUGH [None]
  - EAR INFECTION [None]
  - EAR PAIN [None]
  - OROPHARYNGEAL PAIN [None]
  - OTORRHOEA [None]
  - TYMPANIC MEMBRANE PERFORATION [None]
